FAERS Safety Report 15707194 (Version 1)
Quarter: 2018Q4

REPORT INFORMATION
  Report Type: Report from Study
  Country: BR (occurrence: BR)
  Receive Date: 20181210
  Receipt Date: 20181210
  Transmission Date: 20190205
  Serious: Yes (Death, Life-Threatening, Hospitalization)
  Sender: FDA-Public Use
  Company Number: PHHY2017BR177538

PATIENT
  Age: 95 Year
  Sex: Female
  Weight: 60 kg

DRUGS (5)
  1. EXELON PATCH [Suspect]
     Active Substance: RIVASTIGMINE
     Indication: FEAR
     Dosage: 4.6 MG, QD PATCH 5 (CM2)
     Route: 062
     Dates: start: 201708
  2. COLTRAX [Concomitant]
     Active Substance: THIOCOLCHICOSIDE
     Indication: PRODUCT USED FOR UNKNOWN INDICATION
     Dosage: 2 DF, QD
     Route: 048
     Dates: start: 201708
  3. RECONTER [Concomitant]
     Active Substance: ESCITALOPRAM OXALATE
     Indication: PRODUCT USED FOR UNKNOWN INDICATION
     Dosage: 5 DRP, QD
     Route: 048
     Dates: start: 201708
  4. SEROQUEL [Concomitant]
     Active Substance: QUETIAPINE FUMARATE
     Indication: PRODUCT USED FOR UNKNOWN INDICATION
     Dosage: 2 DF, QD
     Route: 048
     Dates: start: 201708
  5. EXELON PATCH [Suspect]
     Active Substance: RIVASTIGMINE
     Indication: DEMENTIA ALZHEIMER^S TYPE

REACTIONS (12)
  - Irritability [Not Recovered/Not Resolved]
  - Diarrhoea [Recovered/Resolved]
  - Dementia [Not Recovered/Not Resolved]
  - Death [Fatal]
  - Incorrect product administration duration [Unknown]
  - Anal incontinence [Recovering/Resolving]
  - Urinary tract infection [Not Recovered/Not Resolved]
  - Fatigue [Unknown]
  - Abdominal pain upper [Recovering/Resolving]
  - Sleep disorder [Not Recovered/Not Resolved]
  - Aggression [Not Recovered/Not Resolved]
  - Gastrointestinal disorder [Not Recovered/Not Resolved]

NARRATIVE: CASE EVENT DATE: 201708
